FAERS Safety Report 4345607-5 (Version None)
Quarter: 2004Q2

REPORT INFORMATION
  Report Type: 
  Country: None (occurrence: None)
  Receive Date: 20040421
  Receipt Date: 20040409
  Transmission Date: 20050107
  Serious: Yes (Other)
  Sender: FDA-Public Use
  Company Number: 2004-01510

PATIENT
  Age: 69 Year
  Sex: Female

DRUGS (1)
  1. METOCLOPRAMIDE (WATSON LABORATORIES)(METOCLOPRAMIDE) TABLETS, 10MG [Suspect]
     Indication: DIABETIC GASTROPARESIS
     Dosage: 10 MG, QID, ORAL
     Route: 048
     Dates: end: 20030101

REACTIONS (3)
  - ACTIVITIES OF DAILY LIVING IMPAIRED [None]
  - FAILURE TO THRIVE [None]
  - MUSCLE RIGIDITY [None]
